FAERS Safety Report 5235727-5 (Version None)
Quarter: 2007Q1

REPORT INFORMATION
  Report Type: 
  Country: None (occurrence: None)
  Receive Date: 20061208
  Receipt Date: 20060614
  Transmission Date: 20070707
  Serious: Yes (Other)
  Sender: FDA-Public Use
  Company Number: 2006UW12729

PATIENT
  Age: 50 Year
  Sex: Female
  Weight: 97.522 kg

DRUGS (2)
  1. CRESTOR [Suspect]
     Indication: HYPERCHOLESTEROLAEMIA
     Dosage: 10 MG QD PO
     Route: 048
     Dates: start: 20060101
  2. ESTRATEST [Concomitant]

REACTIONS (7)
  - DYSURIA [None]
  - FLANK PAIN [None]
  - HYPERHIDROSIS [None]
  - HYPOGLYCAEMIA [None]
  - MUSCLE SPASMS [None]
  - SINUSITIS [None]
  - SYNCOPE [None]
